FAERS Safety Report 19720898 (Version 1)
Quarter: 2021Q3

REPORT INFORMATION
  Report Type: Other
  Country: US (occurrence: US)
  Receive Date: 20210819
  Receipt Date: 20210819
  Transmission Date: 20211014
  Serious: Yes (Hospitalization)
  Sender: FDA-Public Use
  Company Number: US-NAARI PTE LIMITED-2115336

PATIENT
  Age: 15 Year
  Sex: Female

DRUGS (3)
  1. PROGESTERONE. [Suspect]
     Active Substance: PROGESTERONE
     Route: 065
  2. NORETHINDRONE. [Suspect]
     Active Substance: NORETHINDRONE
     Indication: HEAVY MENSTRUAL BLEEDING
     Route: 048
  3. ETONOGESTREL [Suspect]
     Active Substance: ETONOGESTREL
     Route: 065

REACTIONS (3)
  - Shock haemorrhagic [Recovered/Resolved]
  - Haemoperitoneum [Recovered/Resolved]
  - Hepatic adenoma [Recovering/Resolving]
